FAERS Safety Report 13168521 (Version 1)
Quarter: 2017Q1

REPORT INFORMATION
  Report Type: Spontaneous
  Country: BR (occurrence: BR)
  Receive Date: 20170131
  Receipt Date: 20170131
  Transmission Date: 20170428
  Serious: Yes (Other)
  Sender: FDA-Public Use
  Company Number: PHHY2017BR009598

PATIENT
  Sex: Female

DRUGS (3)
  1. TRANEXAMIC ACID. [Interacting]
     Active Substance: TRANEXAMIC ACID
     Indication: PRODUCT USED FOR UNKNOWN INDICATION
     Route: 065
  2. LEVOFLOXACIN SANDOZ [Interacting]
     Active Substance: LEVOFLOXACIN
     Indication: POLYP
  3. LEVOFLOXACIN SANDOZ [Suspect]
     Active Substance: LEVOFLOXACIN
     Indication: BACTERIAL INFECTION
     Dosage: 500 MG, QD
     Route: 048
     Dates: start: 20170116

REACTIONS (1)
  - Haemorrhage [Unknown]
